FAERS Safety Report 17954103 (Version 12)
Quarter: 2022Q4

REPORT INFORMATION
  Report Type: Report from Study
  Country: JP (occurrence: JP)
  Receive Date: 20200629
  Receipt Date: 20221215
  Transmission Date: 20230112
  Serious: Yes (Hospitalization, Other)
  Sender: FDA-Public Use
  Company Number: JP-ABBVIE-20K-087-3441185-00

PATIENT
  Sex: Female
  Weight: 36 kg

DRUGS (15)
  1. CARBIDOPA\LEVODOPA [Suspect]
     Active Substance: CARBIDOPA\LEVODOPA
     Indication: Parkinson^s disease
     Dosage: MD: 14.0 ML, CD: 1.9 ML/HR, ED: 1.0 ML?DISCONTINUED IN APR 2020
     Route: 050
     Dates: start: 20200410
  2. CARBIDOPA\LEVODOPA [Suspect]
     Active Substance: CARBIDOPA\LEVODOPA
     Dosage: END DATE WAS APR 2020
     Route: 050
     Dates: start: 20200409
  3. CARBIDOPA\LEVODOPA [Suspect]
     Active Substance: CARBIDOPA\LEVODOPA
     Dosage: DISCONTINUED IN APR 2020
     Route: 050
     Dates: start: 20200416
  4. CARBIDOPA\LEVODOPA [Suspect]
     Active Substance: CARBIDOPA\LEVODOPA
     Dosage: MD: 13 ML?CD: 1.7 ML/HR
     Route: 050
     Dates: start: 20200417
  5. SODIUM PICOSULFATE [Concomitant]
     Active Substance: SODIUM PICOSULFATE
     Indication: Constipation
     Dosage: SODIUM PICOSULFATE HYDRATE
     Route: 048
  6. RABEPRAZOLE SODIUM [Concomitant]
     Active Substance: RABEPRAZOLE SODIUM
     Indication: Gastric ulcer
     Dosage: 10 MILLIGRAM
     Route: 048
  7. CARBIDOPA\LEVODOPA [Concomitant]
     Active Substance: CARBIDOPA\LEVODOPA
     Indication: Parkinson^s disease
     Route: 048
     Dates: start: 20151117
  8. ROTIGOTINE [Concomitant]
     Active Substance: ROTIGOTINE
     Indication: Parkinson^s disease
     Dosage: 13.5 MG (9 MG, 4.5 MG)
     Route: 062
     Dates: start: 20150122
  9. DROXIDOPA [Concomitant]
     Active Substance: DROXIDOPA
     Indication: Parkinson^s disease
     Route: 048
     Dates: start: 20200501
  10. DONEPEZIL HYDROCHLORIDE [Concomitant]
     Active Substance: DONEPEZIL HYDROCHLORIDE
     Indication: Parkinson^s disease
     Dosage: 3 MILLIGRAM
     Route: 048
     Dates: start: 20191001
  11. SOLIFENACIN SUCCINATE [Concomitant]
     Active Substance: SOLIFENACIN SUCCINATE
     Indication: Hypertonic bladder
     Dosage: 5 MILLIGRAM
     Route: 048
  12. ALFACALCIDOL [Concomitant]
     Active Substance: ALFACALCIDOL
     Indication: Osteoporosis
     Route: 048
  13. MAGNESIUM OXIDE [Concomitant]
     Active Substance: MAGNESIUM OXIDE
     Indication: Constipation
     Dosage: TIME INTERVAL: 0.33333333 DAYS: 750 MILLIGRAM
     Route: 048
  14. MAGNESIUM OXIDE [Concomitant]
     Active Substance: MAGNESIUM OXIDE
     Indication: Constipation
     Route: 048
     Dates: start: 20200420
  15. MINODRONIC ACID [Concomitant]
     Active Substance: MINODRONIC ACID
     Indication: Osteoporosis
     Dosage: MINODRONIC ACID HYDRATE
     Route: 048

REACTIONS (16)
  - Intussusception [Recovered/Resolved]
  - Device kink [Unknown]
  - Gastric ulcer haemorrhage [Recovering/Resolving]
  - Bezoar [Recovered/Resolved]
  - Anaemia [Unknown]
  - Drooling [Unknown]
  - Mobility decreased [Unknown]
  - Hypoacusis [Unknown]
  - Dyslalia [Unknown]
  - Malaise [Unknown]
  - Dyspnoea [Unknown]
  - Therapeutic product effect incomplete [Unknown]
  - Constipation [Unknown]
  - Nausea [Recovered/Resolved]
  - Stoma site pain [Unknown]
  - Gastric ulcer haemorrhage [Recovering/Resolving]

NARRATIVE: CASE EVENT DATE: 20200101
